FAERS Safety Report 10742329 (Version 1)
Quarter: 2015Q1

REPORT INFORMATION
  Report Type: Spontaneous
  Country: US (occurrence: None)
  Receive Date: 20150123
  Receipt Date: 20150123
  Transmission Date: 20150721
  Serious: No
  Sender: FDA-Public Use
  Company Number: None

PATIENT
  Age: 85 Year
  Sex: Female
  Weight: 56.7 kg

DRUGS (4)
  1. ALENDRONATE SODIUM. [Suspect]
     Active Substance: ALENDRONATE SODIUM
     Indication: FRACTURE
     Dosage: 70 MG, 4 PILLS PER PACKET, 1 A WEEK, BY MOUTH WITH 8 OZ OF WATER
     Route: 048
     Dates: start: 20141113, end: 20141115
  2. PROAIR HFA [Concomitant]
     Active Substance: ALBUTEROL SULFATE
  3. SYMIBCORT INHALERS [Concomitant]
  4. ALENDRONATE SODIUM. [Suspect]
     Active Substance: ALENDRONATE SODIUM
     Indication: PROPHYLAXIS
     Dosage: 70 MG, 4 PILLS PER PACKET, 1 A WEEK, BY MOUTH WITH 8 OZ OF WATER
     Route: 048
     Dates: start: 20141113, end: 20141115

REACTIONS (6)
  - Gingival pain [None]
  - Arthralgia [None]
  - Joint swelling [None]
  - Alopecia [None]
  - Muscle spasms [None]
  - Musculoskeletal pain [None]

NARRATIVE: CASE EVENT DATE: 20141121
